FAERS Safety Report 7915429-4 (Version None)
Quarter: 2011Q4

REPORT INFORMATION
  Report Type: 
  Country: None (occurrence: None)
  Receive Date: 20111115
  Receipt Date: 20111107
  Transmission Date: 20120403
  Serious: Yes (Hospitalization)
  Sender: FDA-Public Use
  Company Number: PHHY2011IT097836

PATIENT
  Sex: Female

DRUGS (2)
  1. FUROSEMIDE [Suspect]
     Dosage: UNK
  2. RAMIPRIL [Suspect]
     Dosage: UNK

REACTIONS (1)
  - RENAL FAILURE CHRONIC [None]
